FAERS Safety Report 13485397 (Version 1)
Quarter: 2017Q2

REPORT INFORMATION
  Report Type: Spontaneous
  Country: FR (occurrence: FR)
  Receive Date: 20170425
  Receipt Date: 20170425
  Transmission Date: 20170830
  Serious: Yes (Hospitalization)
  Sender: FDA-Public Use
  Company Number: FR-ACCORD-050694

PATIENT
  Age: 27 Year
  Sex: Male

DRUGS (14)
  1. ONDANSETRON ACCORD [Suspect]
     Active Substance: ONDANSETRON
     Indication: PREMEDICATION
     Dosage: ALSO RECEIVED 8 MG FROM 06-OCT-2016 TO 09-OCT-2016
     Route: 042
     Dates: start: 20160924, end: 20160924
  2. METHYLPREDNISOLONE MYLAN [Suspect]
     Active Substance: METHYLPREDNISOLONE
     Indication: PRODUCT USED FOR UNKNOWN INDICATION
     Dosage: DAILY, ALSO RECEIVED FROM 06-OCT-2016 TO 09-OCT-2016
     Route: 042
     Dates: start: 20160921, end: 20160930
  3. OXYNORM [Concomitant]
     Active Substance: OXYCODONE HYDROCHLORIDE
  4. TOPLEXIL [Concomitant]
     Active Substance: UNSPECIFIED INGREDIENT
  5. HEPARIN [Concomitant]
     Active Substance: HEPARIN SODIUM
     Dosage: LOW MOLECULAR WEIGHT HEPARIN
  6. IFOSFAMIDE. [Suspect]
     Active Substance: IFOSFAMIDE
     Indication: TESTICULAR GERM CELL CANCER METASTATIC
     Dosage: DAILY, DAY 3 AND DAY 4 OF THE 2ND COURSE FROM 07-OCT-2016 TO 08-OCT-2016 (BATCH: 6F287I6, 4220 MG)
     Route: 042
     Dates: start: 20160922, end: 20160924
  7. LOVENOX [Concomitant]
     Active Substance: ENOXAPARIN SODIUM
  8. DOLIPRANE [Concomitant]
     Active Substance: ACETAMINOPHEN
  9. BIONOLYTE G5 [Concomitant]
     Active Substance: DEXTROSE\POTASSIUM CHLORIDE\SODIUM CHLORIDE
  10. PACLITAXEL KABI [Suspect]
     Active Substance: PACLITAXEL
     Indication: TESTICULAR GERM CELL CANCER METASTATIC
     Dosage: DAILY, 1ST COURSE (BATCH: 21KF0007, 440 MG)?2ND COURSE (BATCH: 21KF0008, 422 MG, ON 05-OCT-2016)
     Route: 042
     Dates: start: 20160921, end: 20160921
  11. UROMITEXAN [Suspect]
     Active Substance: MESNA
     Indication: PREMEDICATION
     Route: 042
     Dates: start: 20160922, end: 20160924
  12. SOLUPRED [Concomitant]
     Active Substance: PREDNISOLONE
  13. SODIUM CHLORIDE. [Concomitant]
     Active Substance: SODIUM CHLORIDE
  14. LYSOPAINE [Concomitant]
     Active Substance: CETYLPYRIDINIUM CHLORIDE\LYSOZYME HYDROCHLORIDE

REACTIONS (5)
  - Hypoaesthesia [Unknown]
  - Sensory loss [Unknown]
  - Formication [Recovered/Resolved]
  - Encephalopathy [Recovered/Resolved]
  - Hallucination, visual [Recovered/Resolved]

NARRATIVE: CASE EVENT DATE: 20160924
